FAERS Safety Report 6469866-8 (Version None)
Quarter: 2009Q4

REPORT INFORMATION
  Report Type: 
  Country: None (occurrence: None)
  Receive Date: 20091203
  Receipt Date: 20091127
  Transmission Date: 20100525
  Serious: Yes (Other)
  Sender: FDA-Public Use
  Company Number: FR-ROCHE-671503

PATIENT
  Age: 19 Year
  Sex: Male

DRUGS (4)
  1. CELLCEPT [Suspect]
     Indication: RENAL TRANSPLANT
     Route: 048
  2. PROGRAF [Concomitant]
     Indication: DRUG USE FOR UNKNOWN INDICATION
  3. CORTANCYL [Concomitant]
     Indication: DRUG USE FOR UNKNOWN INDICATION
  4. RENITEC [Concomitant]
     Indication: DRUG USE FOR UNKNOWN INDICATION

REACTIONS (5)
  - ANAEMIA [None]
  - CONVULSION [None]
  - LOSS OF CONSCIOUSNESS [None]
  - PSYCHOMOTOR SKILLS IMPAIRED [None]
  - STRABISMUS [None]
